FAERS Safety Report 5025912-X (Version None)
Quarter: 2006Q2

REPORT INFORMATION
  Report Type: 
  Country: None (occurrence: None)
  Receive Date: 20060614
  Receipt Date: 20060601
  Transmission Date: 20061013
  Serious: Yes (Other)
  Sender: FDA-Public Use
  Company Number: US-GLAXOSMITHKLINE-A0608048A

PATIENT

DRUGS (1)
  1. PAXIL CR [Suspect]
     Indication: DRUG USE FOR UNKNOWN INDICATION
     Dosage: 37.5MG UNKNOWN
     Route: 048

REACTIONS (3)
  - GASTRIC DISORDER [None]
  - GASTRIC ULCER [None]
  - HIATUS HERNIA [None]
